FAERS Safety Report 25407615 (Version 1)
Quarter: 2025Q2

REPORT INFORMATION
  Report Type: Spontaneous
  Country: US (occurrence: None)
  Receive Date: 20250605
  Receipt Date: 20250605
  Transmission Date: 20250716
  Serious: Yes (Hospitalization)
  Sender: FDA-CTU
  Company Number: None

PATIENT
  Sex: Female

DRUGS (1)
  1. MEKTOVI [Suspect]
     Active Substance: BINIMETINIB
     Dosage: FREQUENCY : TWICE A DAY;?
     Route: 048

REACTIONS (7)
  - Asthenia [None]
  - Contusion [None]
  - Peripheral artery occlusion [None]
  - Amnesia [None]
  - Pruritus [None]
  - Tumour pain [None]
  - Carotid artery occlusion [None]
